FAERS Safety Report 9692306 (Version 1)
Quarter: 2013Q4

REPORT INFORMATION
  Report Type: Other
  Country: US (occurrence: US)
  Receive Date: 20131118
  Receipt Date: 20131118
  Transmission Date: 20140711
  Serious: Yes (Death)
  Sender: FDA-Public Use
  Company Number: US-SHIRE-ALL1-2011-04221

PATIENT
  Age: 68 Year
  Sex: Female

DRUGS (1)
  1. FOSRENOL [Suspect]
     Indication: HYPERPHOSPHATAEMIA
     Dosage: 1000 MG, 4X/DAY:QID
     Route: 048

REACTIONS (2)
  - Cardiac arrest [Fatal]
  - Chest pain [Not Recovered/Not Resolved]
